FAERS Safety Report 19001126 (Version 1)
Quarter: 2021Q1

REPORT INFORMATION
  Report Type: Spontaneous
  Country: US (occurrence: US)
  Receive Date: 20210311
  Receipt Date: 20210311
  Transmission Date: 20210420
  Serious: No
  Sender: FDA-Public Use
  Company Number: None

PATIENT
  Age: 74 Year
  Sex: Male
  Weight: 85.95 kg

DRUGS (2)
  1. WARFARIN [Suspect]
     Active Substance: WARFARIN
     Indication: ATRIAL FIBRILLATION
     Dosage: 1/2 TAB(2.5MG) SUNDAY; 5MG MON THRU SAT MG EVERY DAY PO
     Route: 048
     Dates: start: 20100205, end: 20100206
  2. WARFARIN [Suspect]
     Active Substance: WARFARIN
     Indication: CEREBROVASCULAR ACCIDENT PROPHYLAXIS

REACTIONS (4)
  - Nonspecific reaction [None]
  - Condition aggravated [None]
  - Blister [None]
  - Product substitution issue [None]

NARRATIVE: CASE EVENT DATE: 20100206
